FAERS Safety Report 8740577 (Version 5)
Quarter: 2013Q2

REPORT INFORMATION
  Report Type: Spontaneous
  Country: US (occurrence: US)
  Receive Date: 20120823
  Receipt Date: 20130620
  Transmission Date: 20140414
  Serious: Yes (Hospitalization)
  Sender: FDA-Public Use
  Company Number: US-009507513-1208USA007468

PATIENT
  Sex: Female
  Weight: 90.7 kg

DRUGS (1)
  1. NUVARING [Suspect]
     Indication: CONTRACEPTION
     Dosage: UNK
     Route: 067
     Dates: start: 20050224, end: 201001

REACTIONS (6)
  - Hypokalaemia [Recovered/Resolved]
  - Deep vein thrombosis [Unknown]
  - Oedema peripheral [Unknown]
  - Protein S deficiency [Not Recovered/Not Resolved]
  - Cystitis [Unknown]
  - Menstruation delayed [Unknown]
